FAERS Safety Report 15578518 (Version 1)
Quarter: 2018Q4

REPORT INFORMATION
  Report Type: Spontaneous
  Country: US (occurrence: US)
  Receive Date: 20181102
  Receipt Date: 20181102
  Transmission Date: 20190205
  Serious: No
  Sender: FDA-Public Use
  Company Number: US-IPSEN BIOPHARMACEUTICALS, INC.-2018-16521

PATIENT
  Age: 84 Year
  Sex: Female
  Weight: 76.27 kg

DRUGS (5)
  1. IRON [Concomitant]
     Active Substance: IRON
  2. TRAMADOL. [Concomitant]
     Active Substance: TRAMADOL
  3. VERPAMIL [Concomitant]
     Active Substance: VERAPAMIL HYDROCHLORIDE
  4. CALCIUM [Concomitant]
     Active Substance: CALCIUM
  5. SUPREP BOWEL PREP [Suspect]
     Active Substance: MAGNESIUM SULFATE\POTASSIUM SULFATE\SODIUM SULFATE
     Indication: COLONOSCOPY
     Dosage: 1X 6 OZ BOTTLE
     Route: 048
     Dates: start: 20181021, end: 20181021

REACTIONS (1)
  - Vomiting [Unknown]

NARRATIVE: CASE EVENT DATE: 20181021
